FAERS Safety Report 7381351-8 (Version None)
Quarter: 2011Q1

REPORT INFORMATION
  Report Type: 
  Country: None (occurrence: None)
  Receive Date: 20110323
  Receipt Date: 20110323
  Transmission Date: 20110831
  Serious: Yes (Hospitalization)
  Sender: FDA-Public Use
  Company Number: None

PATIENT
  Sex: Female
  Weight: 43.54 kg

DRUGS (1)
  1. CISPLATIN [Suspect]
     Dosage: 55 MG(PATIENT REDUCED TO FROM 50 MG TO 40 MG DUE TO DECREASED ANC CYCLE 2)

REACTIONS (9)
  - HAEMATOCRIT DECREASED [None]
  - WHITE BLOOD CELL COUNT DECREASED [None]
  - BLOOD PRESSURE DECREASED [None]
  - WEIGHT DECREASED [None]
  - BLOOD ALBUMIN DECREASED [None]
  - DIARRHOEA [None]
  - HEART RATE DECREASED [None]
  - BLOOD CALCIUM DECREASED [None]
  - HAEMOGLOBIN DECREASED [None]
